FAERS Safety Report 8403528-2 (Version None)
Quarter: 2012Q2

REPORT INFORMATION
  Report Type: 
  Country: None (occurrence: None)
  Receive Date: 20120601
  Receipt Date: 20120528
  Transmission Date: 20120825
  Serious: Yes (Death, Hospitalization, Other)
  Sender: FDA-Public Use
  Company Number: BR-ABBOTT-12P-020-0940056-00

PATIENT
  Sex: Female
  Weight: 79 kg

DRUGS (3)
  1. METHOTREXATE [Concomitant]
     Indication: ARTHRITIS
     Dosage: 1 TABLET IN THE MORNING AND 1 TABLET AT NIGHT
     Route: 048
  2. FOLIC ACID [Concomitant]
     Indication: PROPHYLAXIS
     Route: 048
  3. HUMIRA [Suspect]
     Indication: RHEUMATOID ARTHRITIS
     Route: 058
     Dates: start: 20081101

REACTIONS (9)
  - MALAISE [None]
  - OEDEMA PERIPHERAL [None]
  - INSOMNIA [None]
  - PULMONARY OEDEMA [None]
  - BREAST CANCER [None]
  - METASTASES TO LUNG [None]
  - DYSPNOEA [None]
  - DECREASED APPETITE [None]
  - VIRAL INFECTION [None]
